FAERS Safety Report 5512306-3 (Version None)
Quarter: 2007Q4

REPORT INFORMATION
  Report Type: 
  Country: None (occurrence: None)
  Receive Date: 20071112
  Receipt Date: 20071004
  Transmission Date: 20080405
  Serious: No
  Sender: FDA-Public Use
  Company Number: A0686145A

PATIENT
  Sex: Male

DRUGS (3)
  1. VERAMYST [Suspect]
     Route: 045
  2. ALLEGRA [Suspect]
  3. NO CONCURRENT MEDICATION [Concomitant]

REACTIONS (1)
  - RASH [None]
